FAERS Safety Report 12699959 (Version 1)
Quarter: 2016Q3

REPORT INFORMATION
  Report Type: Spontaneous
  Country: US (occurrence: US)
  Receive Date: 20160830
  Receipt Date: 20160830
  Transmission Date: 20161109
  Serious: No
  Sender: FDA-Public Use
  Company Number: US-BAYER-2016-160555

PATIENT
  Sex: Male

DRUGS (1)
  1. MIRALAX [Suspect]
     Active Substance: POLYETHYLENE GLYCOL 3350
     Dosage: 1 DOSE
     Route: 048
     Dates: start: 20160815, end: 20160815

REACTIONS (3)
  - Dry mouth [Not Recovered/Not Resolved]
  - Off label use [None]
  - Wrong technique in product usage process [None]

NARRATIVE: CASE EVENT DATE: 20160815
